FAERS Safety Report 4579873-8 (Version None)
Quarter: 2005Q1

REPORT INFORMATION
  Report Type: 
  Country: None (occurrence: None)
  Receive Date: 20050211
  Receipt Date: 20050211
  Transmission Date: 20050727
  Serious: Yes (Hospitalization)
  Sender: FDA-Public Use
  Company Number: None

PATIENT
  Age: 79 Year
  Sex: Male
  Weight: 81.1939 kg

DRUGS (14)
  1. QUADRAMET [Suspect]
     Indication: PROSTATE CANCER
     Dosage: 0.75 MIL / KG IV
     Route: 042
     Dates: start: 20050203
  2. ZOMETA [Suspect]
     Dosage: 4 MG IV
     Route: 042
     Dates: start: 20050204
  3. HYDROCHLOROTHIAZIDE [Concomitant]
  4. PLAVIX [Concomitant]
  5. ZOCOR [Concomitant]
  6. AVALIDE [Concomitant]
  7. ACTOS [Concomitant]
  8. PREVACID [Concomitant]
  9. DURAGESIC [Concomitant]
  10. OXYCODONE [Concomitant]
  11. ARANESP [Concomitant]
  12. DES [Concomitant]
  13. COUMADIN [Concomitant]
  14. COMPAZINE [Concomitant]

REACTIONS (1)
  - ADVERSE EVENT [None]
